FAERS Safety Report 15144650 (Version 1)
Quarter: 2018Q3

REPORT INFORMATION
  Report Type: Spontaneous
  Country: CN (occurrence: CN)
  Receive Date: 20180713
  Receipt Date: 20180713
  Transmission Date: 20181010
  Serious: Yes (Other)
  Sender: FDA-Public Use
  Company Number: CN-APOPHARMA USA, INC.-2018AP016797

PATIENT

DRUGS (3)
  1. TOBRADEX [Concomitant]
     Active Substance: DEXAMETHASONE\TOBRAMYCIN
     Indication: PRODUCT USED FOR UNKNOWN INDICATION
     Dosage: UNK GTT, TID
     Route: 047
  2. ALKERAN [Suspect]
     Active Substance: MELPHALAN
     Dosage: 40 ?G, OTHER
     Route: 050
  3. ALKERAN [Suspect]
     Active Substance: MELPHALAN
     Indication: VITREOUS FLOATERS
     Dosage: 20 ?G, OTHER
     Route: 050

REACTIONS (3)
  - Iris adhesions [Unknown]
  - Retinopathy [Unknown]
  - Cataract cortical [Unknown]
